FAERS Safety Report 18275660 (Version 4)
Quarter: 2022Q2

REPORT INFORMATION
  Report Type: Report from Study
  Country: US (occurrence: US)
  Receive Date: 20200917
  Receipt Date: 20220623
  Transmission Date: 20220721
  Serious: Yes (Hospitalization, Other)
  Sender: FDA-Public Use
  Company Number: US-SHIRE-US202030098

PATIENT
  Sex: Female

DRUGS (14)
  1. TEDUGLUTIDE [Suspect]
     Active Substance: TEDUGLUTIDE
     Indication: Short-bowel syndrome
     Dosage: UNK, QD
     Route: 065
     Dates: start: 20171120
  2. TEDUGLUTIDE [Suspect]
     Active Substance: TEDUGLUTIDE
     Indication: Short-bowel syndrome
     Dosage: UNK, QD
     Route: 065
     Dates: start: 20171120
  3. TEDUGLUTIDE [Suspect]
     Active Substance: TEDUGLUTIDE
     Indication: Short-bowel syndrome
     Dosage: UNK, QD
     Route: 065
     Dates: start: 20171120
  4. TEDUGLUTIDE [Suspect]
     Active Substance: TEDUGLUTIDE
     Indication: Short-bowel syndrome
     Dosage: UNK, QD
     Route: 065
     Dates: start: 20171120
  5. TEDUGLUTIDE [Suspect]
     Active Substance: TEDUGLUTIDE
     Dosage: 2 LITER, 1/WEEK
     Route: 065
  6. TEDUGLUTIDE [Suspect]
     Active Substance: TEDUGLUTIDE
     Dosage: 2 LITER, 1/WEEK
     Route: 065
  7. TEDUGLUTIDE [Suspect]
     Active Substance: TEDUGLUTIDE
     Dosage: 2 LITER, 1/WEEK
     Route: 065
  8. TEDUGLUTIDE [Suspect]
     Active Substance: TEDUGLUTIDE
     Dosage: 2 LITER, 1/WEEK
     Route: 065
  9. TEDUGLUTIDE [Suspect]
     Active Substance: TEDUGLUTIDE
     Dosage: 3 LITER, 1/WEEK
     Route: 065
  10. TEDUGLUTIDE [Suspect]
     Active Substance: TEDUGLUTIDE
     Dosage: 3 LITER, 1/WEEK
     Route: 065
  11. TEDUGLUTIDE [Suspect]
     Active Substance: TEDUGLUTIDE
     Dosage: 3 LITER, 1/WEEK
     Route: 065
  12. TEDUGLUTIDE [Suspect]
     Active Substance: TEDUGLUTIDE
     Dosage: 3 LITER, 1/WEEK
     Route: 065
  13. IMODIUM [Concomitant]
     Active Substance: LOPERAMIDE HYDROCHLORIDE
  14. PEPCID [Concomitant]
     Active Substance: FAMOTIDINE

REACTIONS (9)
  - Pneumonia [Unknown]
  - Abnormal faeces [Unknown]
  - Cardiac disorder [Unknown]
  - Intentional product misuse [Unknown]
  - Product dose omission issue [Unknown]
  - Product distribution issue [Unknown]
  - Diarrhoea [Unknown]
  - Oropharyngeal pain [Unknown]
  - Heart rate increased [Unknown]
